FAERS Safety Report 16862241 (Version 2)
Quarter: 2020Q3

REPORT INFORMATION
  Report Type: Spontaneous
  Country: US (occurrence: US)
  Receive Date: 20190927
  Receipt Date: 20200824
  Transmission Date: 20201102
  Serious: Yes (Hospitalization, Other)
  Sender: FDA-Public Use
  Company Number: US-GILEAD-2019-0429714

PATIENT
  Age: 39 Year
  Sex: Male
  Weight: 71.2 kg

DRUGS (34)
  1. RENVELA [Concomitant]
     Active Substance: SEVELAMER CARBONATE
     Dosage: UNK
     Dates: start: 20150410
  2. PREZISTA [Concomitant]
     Active Substance: DARUNAVIR ETHANOLATE
  3. ZIAGEN [Concomitant]
     Active Substance: ABACAVIR SULFATE
  4. DILTIAZEM. [Concomitant]
     Active Substance: DILTIAZEM
  5. ABACAVIR. [Concomitant]
     Active Substance: ABACAVIR
  6. CARVEDILOL. [Concomitant]
     Active Substance: CARVEDILOL
  7. IRON [Concomitant]
     Active Substance: IRON
     Dosage: UNK
     Dates: start: 20170406
  8. EDURANT [Concomitant]
     Active Substance: RILPIVIRINE HYDROCHLORIDE
  9. INTELENCE [Concomitant]
     Active Substance: ETRAVIRINE
  10. NORVIR [Concomitant]
     Active Substance: RITONAVIR
  11. AMLODIPINE BESYLATE. [Concomitant]
     Active Substance: AMLODIPINE BESYLATE
  12. ATORVASTATIN [Concomitant]
     Active Substance: ATORVASTATIN
  13. CEFDINIR. [Concomitant]
     Active Substance: CEFDINIR
  14. VIREAD [Suspect]
     Active Substance: TENOFOVIR DISOPROXIL FUMARATE
     Indication: HIV INFECTION
     Dosage: UNK
     Route: 048
     Dates: start: 20180821
  15. COMBIVIR [Concomitant]
     Active Substance: LAMIVUDINE\ZIDOVUDINE
  16. CALCIUM ACETATE. [Concomitant]
     Active Substance: CALCIUM ACETATE
  17. EPZICOM [Concomitant]
     Active Substance: ABACAVIR SULFATE\LAMIVUDINE
  18. AMOXICILLIN. [Concomitant]
     Active Substance: AMOXICILLIN
  19. TRUVADA [Suspect]
     Active Substance: EMTRICITABINE\TENOFOVIR DISOPROXIL FUMARATE
     Indication: HIV INFECTION
     Dosage: UNK
     Route: 048
     Dates: start: 2011, end: 2018
  20. TIVICAY [Concomitant]
     Active Substance: DOLUTEGRAVIR SODIUM
  21. ACETAMINOPHEN;CODEINE [Concomitant]
     Active Substance: ACETAMINOPHEN\CODEINE PHOSPHATE
  22. CARISOPRODOL. [Concomitant]
     Active Substance: CARISOPRODOL
  23. EMTRIVA [Concomitant]
     Active Substance: EMTRICITABINE
  24. CINACALCET. [Concomitant]
     Active Substance: CINACALCET
     Dosage: UNK
     Dates: start: 20160616
  25. PREDNISONE. [Concomitant]
     Active Substance: PREDNISONE
     Dosage: UNK
     Dates: start: 20130321
  26. LEXIVA [Concomitant]
     Active Substance: FOSAMPRENAVIR CALCIUM
  27. GENTAMYCIN [GENTAMICIN] [Concomitant]
     Active Substance: GENTAMICIN
  28. ALLOPURINOL. [Concomitant]
     Active Substance: ALLOPURINOL
  29. ASPIRIN EC [Concomitant]
     Active Substance: ASPIRIN
  30. CALCITROL [CALCITRIOL] [Concomitant]
     Active Substance: CALCITRIOL
  31. JULUCA [Concomitant]
     Active Substance: DOLUTEGRAVIR SODIUM\RILPIVIRINE HYDROCHLORIDE
  32. BRILINTA [Concomitant]
     Active Substance: TICAGRELOR
  33. EPIVIR [Concomitant]
     Active Substance: LAMIVUDINE
  34. SUSTIVA [Concomitant]
     Active Substance: EFAVIRENZ

REACTIONS (15)
  - Loss of personal independence in daily activities [Not Recovered/Not Resolved]
  - Myocardial infarction [Unknown]
  - Anhedonia [Not Recovered/Not Resolved]
  - End stage renal disease [Unknown]
  - Impaired work ability [Not Recovered/Not Resolved]
  - Economic problem [Not Recovered/Not Resolved]
  - Fear-related avoidance of activities [Not Recovered/Not Resolved]
  - Renal failure [Unknown]
  - Quality of life decreased [Not Recovered/Not Resolved]
  - Emotional distress [Not Recovered/Not Resolved]
  - Osteopenia [Not Recovered/Not Resolved]
  - Fatigue [Not Recovered/Not Resolved]
  - Mobility decreased [Not Recovered/Not Resolved]
  - Pain [Not Recovered/Not Resolved]
  - Anxiety [Not Recovered/Not Resolved]
